FAERS Safety Report 14278531 (Version 1)
Quarter: 2017Q4

REPORT INFORMATION
  Report Type: Spontaneous
  Country: KR (occurrence: KR)
  Receive Date: 20171211
  Receipt Date: 20171211
  Transmission Date: 20180321
  Serious: Yes (Other)
  Sender: FDA-Public Use
  Company Number: KR-OTSUKA-2016_013873

PATIENT

DRUGS (1)
  1. ABILIFY [Suspect]
     Active Substance: ARIPIPRAZOLE
     Indication: ABNORMAL BEHAVIOUR
     Dosage: UNK UNK, QD
     Route: 065

REACTIONS (4)
  - Tremor [Unknown]
  - Extrapyramidal disorder [Unknown]
  - Mental impairment [Unknown]
  - Product use in unapproved indication [Unknown]
